FAERS Safety Report 11656139 (Version 3)
Quarter: 2016Q1

REPORT INFORMATION
  Report Type: Spontaneous
  Country: US (occurrence: US)
  Receive Date: 20151023
  Receipt Date: 20160328
  Transmission Date: 20160525
  Serious: Yes (Other)
  Sender: FDA-Public Use
  Company Number: US-TEVA-602738USA

PATIENT
  Age: 34 Year
  Sex: Female

DRUGS (17)
  1. BENADRYL [Concomitant]
     Active Substance: DIPHENHYDRAMINE HYDROCHLORIDE
  2. HYDROMORPHONE [Concomitant]
     Active Substance: HYDROMORPHONE
  3. OXYBUTYNIN [Concomitant]
     Active Substance: OXYBUTYNIN
  4. BACLOFEN. [Concomitant]
     Active Substance: BACLOFEN
  5. ONDANSETRON [Concomitant]
     Active Substance: ONDANSETRON
  6. COPAXONE [Suspect]
     Active Substance: GLATIRAMER ACETATE
     Indication: MULTIPLE SCLEROSIS
     Route: 058
     Dates: start: 20130910
  7. GABAPENTIN. [Concomitant]
     Active Substance: GABAPENTIN
  8. METHADONE [Concomitant]
     Active Substance: METHADONE HYDROCHLORIDE
  9. NAMENDA [Concomitant]
     Active Substance: MEMANTINE HYDROCHLORIDE
  10. NUDEXTA [Concomitant]
     Dosage: 20-10MG
  11. AMANTADINE [Concomitant]
     Active Substance: AMANTADINE
  12. TERBINAFINE. [Concomitant]
     Active Substance: TERBINAFINE
  13. CARBAMAZEPIN [Concomitant]
     Active Substance: CARBAMAZEPINE
  14. LEVETIRACETAM. [Concomitant]
     Active Substance: LEVETIRACETAM
  15. SPIRONOLACT [Concomitant]
  16. IBUPROFEN. [Concomitant]
     Active Substance: IBUPROFEN
  17. TRAMADOL. [Concomitant]
     Active Substance: TRAMADOL

REACTIONS (2)
  - Loss of consciousness [Recovered/Resolved]
  - Motor dysfunction [Recovered/Resolved]

NARRATIVE: CASE EVENT DATE: 20151130
